FAERS Safety Report 10228812 (Version 2)
Quarter: 2014Q2

REPORT INFORMATION
  Report Type: Spontaneous
  Country: JP (occurrence: JP)
  Receive Date: 20140610
  Receipt Date: 20140610
  Transmission Date: 20141212
  Serious: Yes (Other)
  Sender: FDA-Public Use
  Company Number: JP-SPECTRUM PHARMACEUTICALS, INC.-14-Z-JP-00094

PATIENT
  Age: 76 Year
  Sex: Male

DRUGS (1)
  1. ZEVALIN [Suspect]
     Indication: LYMPHOMA
     Dosage: UNK, UNKNOWN
     Route: 042

REACTIONS (1)
  - Depression [Not Recovered/Not Resolved]
